FAERS Safety Report 4412955-X (Version None)
Quarter: 2004Q3

REPORT INFORMATION
  Report Type: 
  Country: None (occurrence: None)
  Receive Date: 20040802
  Receipt Date: 20031028
  Transmission Date: 20050211
  Serious: No
  Sender: FDA-Public Use
  Company Number: US-GLAXOSMITHKLINE-A0431941A

PATIENT
  Age: 2 Month
  Sex: Male

DRUGS (2)
  1. ZANTAC [Suspect]
     Dosage: 2ML TWICE PER DAY
     Route: 048
     Dates: start: 20031025, end: 20031025
  2. REGLAN [Concomitant]

REACTIONS (4)
  - CRYING [None]
  - MUSCLE SPASMS [None]
  - OVERDOSE [None]
  - TREMOR [None]
